FAERS Safety Report 5924584-7 (Version None)
Quarter: 2008Q4

REPORT INFORMATION
  Report Type: 
  Country: None (occurrence: None)
  Receive Date: 20081020
  Receipt Date: 20081008
  Transmission Date: 20090506
  Serious: Yes (Hospitalization, Other)
  Sender: FDA-Public Use
  Company Number: US-PFIZER INC-2008086370

PATIENT
  Sex: Female
  Weight: 57.6 kg

DRUGS (3)
  1. CHANTIX [Suspect]
     Indication: SMOKING CESSATION THERAPY
     Route: 048
     Dates: start: 20070401, end: 20070101
  2. ASACOL [Concomitant]
  3. PENTASA [Concomitant]

REACTIONS (7)
  - DEHYDRATION [None]
  - DIARRHOEA [None]
  - HEADACHE [None]
  - MALAISE [None]
  - POLYCHONDRITIS [None]
  - VOMITING [None]
  - WEIGHT DECREASED [None]
